FAERS Safety Report 7256184-3 (Version None)
Quarter: 2011Q1

REPORT INFORMATION
  Report Type: 
  Country: None (occurrence: None)
  Receive Date: 20110129
  Receipt Date: 20100505
  Transmission Date: 20110831
  Serious: No
  Sender: FDA-Public Use
  Company Number: US-ABBOTT-10P-163-0643349-00

PATIENT
  Sex: Male
  Weight: 88.984 kg

DRUGS (3)
  1. HUMIRA [Suspect]
     Indication: PSORIATIC ARTHROPATHY
     Dates: start: 20100101, end: 20100301
  2. HUMIRA [Suspect]
     Dates: start: 20100505
  3. MOXIFLOXACIN [Suspect]
     Indication: SINUSITIS
     Dates: start: 20100401, end: 20100401

REACTIONS (2)
  - PAIN IN EXTREMITY [None]
  - SINUSITIS [None]
